FAERS Safety Report 17308651 (Version 1)
Quarter: 2020Q1

REPORT INFORMATION
  Report Type: Spontaneous
  Country: SE (occurrence: SE)
  Receive Date: 20200123
  Receipt Date: 20200123
  Transmission Date: 20200409
  Serious: Yes (Hospitalization)
  Sender: FDA-Public Use
  Company Number: SE-MYLANLABS-2020M1007180

PATIENT
  Age: 19 Year
  Sex: Female

DRUGS (2)
  1. LERGIGAN (PROMETHAZINE HYDROCHLORIDE) [Suspect]
     Active Substance: PROMETHAZINE HYDROCHLORIDE
     Indication: PRODUCT USED FOR UNKNOWN INDICATION
     Dosage: 375 MILLIGRAM
     Route: 048
     Dates: start: 20180920, end: 20180920
  2. VENLAFAXINE [Suspect]
     Active Substance: VENLAFAXINE HYDROCHLORIDE
     Indication: PRODUCT USED FOR UNKNOWN INDICATION
     Dosage: 187.5 MILLIGRAM
     Route: 048
     Dates: start: 20180920, end: 20180920

REACTIONS (8)
  - Visual impairment [Unknown]
  - Tremor [Unknown]
  - Intentional self-injury [Unknown]
  - Fatigue [Unknown]
  - Hallucination, visual [Recovered/Resolved]
  - Intentional overdose [Unknown]
  - Anxiety [Unknown]
  - Tachycardia [Recovered/Resolved]

NARRATIVE: CASE EVENT DATE: 20180920
